FAERS Safety Report 4774926-3 (Version None)
Quarter: 2005Q3

REPORT INFORMATION
  Report Type: 
  Country: None (occurrence: None)
  Receive Date: 20050919
  Receipt Date: 20050912
  Transmission Date: 20060218
  Serious: Yes (Other)
  Sender: FDA-Public Use
  Company Number: 2005116592

PATIENT
  Age: 38 Year
  Sex: Female

DRUGS (1)
  1. MEDROXYPROGESTERONE ACETATE [Suspect]
     Indication: CONTRACEPTION
     Dosage: INTRAMUSCULAR
     Route: 030
     Dates: start: 20001101, end: 20050101

REACTIONS (3)
  - ENDOMETRIAL HYPERPLASIA [None]
  - UTERINE POLYP [None]
  - VAGINAL HAEMORRHAGE [None]
